FAERS Safety Report 6756150-8 (Version None)
Quarter: 2010Q2

REPORT INFORMATION
  Report Type: 
  Country: None (occurrence: None)
  Receive Date: 20100604
  Receipt Date: 20100531
  Transmission Date: 20101027
  Serious: Yes (Disabling, Other)
  Sender: FDA-Public Use
  Company Number: CHPA2010DE09352

PATIENT
  Sex: Male

DRUGS (2)
  1. OTRIVEN (NCH) [Suspect]
     Dosage: UNK, UNK
     Route: 045
     Dates: start: 20000101
  2. SODIUM CHLORIDE SOLUTION [Concomitant]
     Dosage: UNK, UNK
     Dates: start: 20000101

REACTIONS (2)
  - DRUG DEPENDENCE [None]
  - IMPAIRED WORK ABILITY [None]
